FAERS Safety Report 13305106 (Version 1)
Quarter: 2017Q1

REPORT INFORMATION
  Report Type: Spontaneous
  Country: US (occurrence: US)
  Receive Date: 20170308
  Receipt Date: 20170308
  Transmission Date: 20170428
  Serious: No
  Sender: FDA-Public Use
  Company Number: US-PFIZER INC-2017101692

PATIENT
  Age: 80 Year
  Sex: Female

DRUGS (14)
  1. SERTRALINE HCL [Suspect]
     Active Substance: SERTRALINE HYDROCHLORIDE
     Dosage: UNK
  2. PAXIL [Suspect]
     Active Substance: PAROXETINE HYDROCHLORIDE
     Dosage: UNK
  3. AMITRIPTYLINE [Suspect]
     Active Substance: AMITRIPTYLINE
     Dosage: UNK
  4. VERAPAMIL HCL [Suspect]
     Active Substance: VERAPAMIL HYDROCHLORIDE
     Dosage: UNK
  5. SELDANE [Suspect]
     Active Substance: TERFENADINE
     Dosage: UNK
  6. INDOMETHACIN. [Suspect]
     Active Substance: INDOMETHACIN
     Dosage: UNK
  7. ULTRAM [Suspect]
     Active Substance: TRAMADOL HYDROCHLORIDE
     Dosage: UNK
  8. DOXEPIN HCL [Suspect]
     Active Substance: DOXEPIN HYDROCHLORIDE
     Dosage: UNK
  9. AMLODIPINE BESILATE [Suspect]
     Active Substance: AMLODIPINE BESYLATE
     Dosage: UNK
  10. SERZONE [Suspect]
     Active Substance: NEFAZODONE HYDROCHLORIDE
     Dosage: UNK
  11. OXYCODONE [Suspect]
     Active Substance: OXYCODONE
     Dosage: UNK
  12. ZOLOFT [Suspect]
     Active Substance: SERTRALINE HYDROCHLORIDE
     Dosage: UNK
  13. DONEPEZIL HCL [Suspect]
     Active Substance: DONEPEZIL HYDROCHLORIDE
     Dosage: UNK
  14. PAROXETINE HCL [Suspect]
     Active Substance: PAROXETINE HYDROCHLORIDE
     Dosage: UNK

REACTIONS (1)
  - Drug hypersensitivity [Unknown]
